FAERS Safety Report 10511919 (Version 1)
Quarter: 2014Q3

REPORT INFORMATION
  Report Type: Spontaneous
  Country: US (occurrence: None)
  Receive Date: 20140926
  Receipt Date: 20140926
  Transmission Date: 20150326
  Serious: No
  Sender: FDA-Public Use
  Company Number: 1000068431

PATIENT
  Sex: Female

DRUGS (1)
  1. LINZESS [Suspect]
     Active Substance: LINACLOTIDE
     Indication: CONSTIPATION
     Dosage: 1 OR 2 CAPSULES DAILY (145 MCG), ORAL
     Route: 048
     Dates: start: 201404

REACTIONS (3)
  - Skin odour abnormal [None]
  - Rash [None]
  - Intentional product misuse [None]

NARRATIVE: CASE EVENT DATE: 201405
